FAERS Safety Report 8669452 (Version 2)
Quarter: 2013Q2

REPORT INFORMATION
  Report Type: Spontaneous
  Country: AT (occurrence: AT)
  Receive Date: 20120718
  Receipt Date: 20130523
  Transmission Date: 20140414
  Serious: Yes (Hospitalization)
  Sender: FDA-Public Use
  Company Number: AT-009507513-1206USA01733

PATIENT
  Age: 39 Year
  Sex: Female

DRUGS (3)
  1. SINGULAIR [Suspect]
     Indication: ASTHMA
     Dosage: 10 MG, UNK
     Route: 048
     Dates: start: 201112, end: 201201
  2. SINGULAIR [Suspect]
     Dosage: 10 MG, UNK
     Route: 048
     Dates: start: 201204, end: 20120420
  3. SYMBICORT [Concomitant]
     Indication: ASTHMA
     Dosage: UNK MG, UNK

REACTIONS (5)
  - Interstitial lung disease [Recovering/Resolving]
  - Dyspnoea exertional [Unknown]
  - Asthma [Recovering/Resolving]
  - Feeling abnormal [Recovering/Resolving]
  - Asthma [Recovering/Resolving]
